FAERS Safety Report 7120265-5 (Version None)
Quarter: 2010Q4

REPORT INFORMATION
  Report Type: 
  Country: None (occurrence: None)
  Receive Date: 20101123
  Receipt Date: 20101110
  Transmission Date: 20110411
  Serious: Yes (Other)
  Sender: FDA-Public Use
  Company Number: GB-GENENTECH-309605

PATIENT
  Sex: Female

DRUGS (2)
  1. LUCENTIS [Suspect]
     Indication: CHOROIDAL NEOVASCULARISATION
     Dosage: UNK
     Route: 031
     Dates: start: 20100527
  2. LUCENTIS [Suspect]
     Indication: MACULAR DEGENERATION

REACTIONS (1)
  - VISUAL ACUITY REDUCED [None]
